FAERS Safety Report 17473708 (Version 1)
Quarter: 2020Q1

REPORT INFORMATION
  Report Type: Spontaneous
  Country: US (occurrence: US)
  Receive Date: 20200228
  Receipt Date: 20200228
  Transmission Date: 20200409
  Serious: Yes (Hospitalization)
  Sender: FDA-Public Use
  Company Number: US-BRISTOL-MYERS SQUIBB COMPANY-BMS-2019-126481

PATIENT
  Age: 73 Year
  Sex: Male

DRUGS (7)
  1. ATORVASTATIN [Concomitant]
     Active Substance: ATORVASTATIN
     Indication: HYPERLIPIDAEMIA
     Dosage: 10 MILLIGRAM, QD
     Route: 065
     Dates: start: 201607
  2. PANTOPRAZOLE [Concomitant]
     Active Substance: PANTOPRAZOLE
     Indication: GASTROOESOPHAGEAL REFLUX DISEASE
     Dosage: 40 MILLIGRAM, QD
     Route: 065
     Dates: start: 2000
  3. PANTOPRAZOLE [Concomitant]
     Active Substance: PANTOPRAZOLE
     Indication: HIATUS HERNIA
     Route: 065
  4. CLOPIDROGEL SANDOZ [Concomitant]
     Active Substance: CLOPIDOGREL BISULFATE
     Indication: TRANSIENT ISCHAEMIC ATTACK
     Dosage: 75 MILLIGRAM, QD
     Route: 048
     Dates: start: 201403
  5. IPILIMUMAB [Suspect]
     Active Substance: IPILIMUMAB
     Indication: MALIGNANT MELANOMA
     Dosage: 250 MILLIGRAM, Q3WK
     Route: 065
     Dates: start: 20190807
  6. FLUOCINONIDE. [Concomitant]
     Active Substance: FLUOCINONIDE
     Indication: PRURITUS
     Dosage: UNK, PRN
     Route: 065
     Dates: start: 20190812
  7. HYDROXYZINE [Concomitant]
     Active Substance: HYDROXYZINE HYDROCHLORIDE
     Indication: PRURITUS
     Dosage: 25 MILLIGRAM, PRN
     Route: 065
     Dates: start: 20190812

REACTIONS (1)
  - Colitis [Recovering/Resolving]

NARRATIVE: CASE EVENT DATE: 20190903
